FAERS Safety Report 6873354-4 (Version None)
Quarter: 2010Q3

REPORT INFORMATION
  Report Type: 
  Country: None (occurrence: None)
  Receive Date: 20100723
  Receipt Date: 20090401
  Transmission Date: 20110219
  Serious: No
  Sender: FDA-Public Use
  Company Number: US-PFIZER INC-2008156219

PATIENT
  Sex: Female
  Weight: 56.699 kg

DRUGS (3)
  1. CHANTIX [Suspect]
     Dosage: 1 MG, 2X/DAY
     Dates: start: 20081129, end: 20081206
  2. PROZAC [Concomitant]
     Indication: SURGERY
     Dosage: UNK
  3. DICLOFENAC [Concomitant]
     Indication: SURGERY
     Dosage: UNK

REACTIONS (6)
  - ANGER [None]
  - ANXIETY [None]
  - DECREASED ACTIVITY [None]
  - DEPRESSION [None]
  - IMPATIENCE [None]
  - PERSONALITY CHANGE [None]
